FAERS Safety Report 23276838 (Version 1)
Quarter: 2023Q4

REPORT INFORMATION
  Report Type: Spontaneous
  Country: US (occurrence: None)
  Receive Date: 20231208
  Receipt Date: 20231208
  Transmission Date: 20240109
  Serious: Yes (Hospitalization)
  Sender: FDA-Public Use
  Company Number: 2023A272718

PATIENT
  Sex: Male

DRUGS (1)
  1. BRILINTA [Suspect]
     Active Substance: TICAGRELOR
     Indication: Stent placement
     Route: 048
     Dates: start: 20231111, end: 20231113

REACTIONS (8)
  - Loss of consciousness [Unknown]
  - Haematemesis [Unknown]
  - Disorientation [Unknown]
  - Internal haemorrhage [Unknown]
  - Contusion [Unknown]
  - Syncope [Unknown]
  - Discomfort [Unknown]
  - Decreased appetite [Unknown]
